FAERS Safety Report 4706877-4 (Version None)
Quarter: 2005Q3

REPORT INFORMATION
  Report Type: 
  Country: None (occurrence: None)
  Receive Date: 20050706
  Receipt Date: 20041224
  Transmission Date: 20060218
  Serious: Yes (Death)
  Sender: FDA-Public Use
  Company Number: CH-MERCK-0412CHE00028

PATIENT
  Age: 75 Year
  Sex: Male

DRUGS (5)
  1. FLUTICASONE PROPIONATE AND SALMETEROL XINAFOATE [Concomitant]
     Route: 065
  2. SINGULAIR [Suspect]
     Indication: ASTHMA
     Route: 048
     Dates: start: 20041027
  3. SALMETEROL XINAFOATE [Concomitant]
     Route: 055
  4. TIOTROPIUM BROMIDE [Concomitant]
     Route: 055
  5. ALBUTEROL SULFATE [Concomitant]
     Route: 055

REACTIONS (1)
  - CARDIAC ARREST [None]
